FAERS Safety Report 8807399 (Version 1)
Quarter: 2012Q4

REPORT INFORMATION
  Report Type: 
  Country: US (occurrence: US)
  Receive Date: 20120925
  Receipt Date: 20120925
  Transmission Date: 20130627
  Serious: No
  Sender: FDA-Public Use
  Company Number: US-MYLANLABS-2012S1008371

PATIENT
  Age: 92 Year
  Sex: Male

DRUGS (2)
  1. NITROGLYCERIN TRANSDERMAL SYSTEM [Suspect]
     Indication: ANGINA PECTORIS
     Dosage: Changed qday (with 12 hour nitrate free period)
     Route: 062
     Dates: start: 2009
  2. NITROGLYCERIN TRANSDERMAL SYSTEM [Suspect]
     Indication: VASODILATATION
     Dosage: Changed qday (with 12 hour nitrate free period)
     Route: 062
     Dates: start: 2009

REACTIONS (4)
  - Application site pruritus [Not Recovered/Not Resolved]
  - Application site erythema [Not Recovered/Not Resolved]
  - Application site dryness [Not Recovered/Not Resolved]
  - Application site irritation [Not Recovered/Not Resolved]
